FAERS Safety Report 17877627 (Version 2)
Quarter: 2020Q2

REPORT INFORMATION
  Report Type: Spontaneous
  Country: US (occurrence: US)
  Receive Date: 20200609
  Receipt Date: 20200611
  Transmission Date: 20200714
  Serious: No
  Sender: FDA-Public Use
  Company Number: NVSC2020US030404

PATIENT
  Age: 55 Year
  Sex: Female
  Weight: 61.22 kg

DRUGS (2)
  1. COMBIPATCH [Suspect]
     Active Substance: ESTRADIOL\NORETHINDRONE ACETATE
     Indication: HORMONE LEVEL ABNORMAL
     Dosage: 1 DF, BIW
     Route: 065
     Dates: start: 202001
  2. VITAMIIN C [Concomitant]
     Active Substance: ASCORBIC ACID
     Indication: PRODUCT USED FOR UNKNOWN INDICATION
     Route: 065

REACTIONS (9)
  - Weight increased [Unknown]
  - Application site erythema [Unknown]
  - Application site discomfort [Unknown]
  - Postmenopausal haemorrhage [Recovered/Resolved]
  - Product use in unapproved indication [Unknown]
  - Application site irritation [Unknown]
  - Application site pruritus [Unknown]
  - Abdominal distension [Unknown]
  - Breast enlargement [Unknown]
